FAERS Safety Report 21117787 (Version 1)
Quarter: 2022Q3

REPORT INFORMATION
  Report Type: Report from Study
  Country: US (occurrence: US)
  Receive Date: 20220722
  Receipt Date: 20220722
  Transmission Date: 20221026
  Serious: Yes (Hospitalization, Other)
  Sender: FDA-Public Use
  Company Number: US-ABBVIE-22K-163-4456921-00

PATIENT
  Sex: Male

DRUGS (3)
  1. HUMIRA [Suspect]
     Active Substance: ADALIMUMAB
     Indication: Crohn^s disease
     Dosage: CITRATE FREE
     Route: 058
     Dates: start: 20220605, end: 20220707
  2. MODERNA COVID-19 VACCINE [Concomitant]
     Active Substance: ELASOMERAN
     Indication: COVID-19 immunisation
     Route: 030
  3. MODERNA COVID-19 VACCINE [Concomitant]
     Active Substance: ELASOMERAN
     Dosage: BOOSTER DOSE
     Route: 030

REACTIONS (9)
  - Bowel movement irregularity [Unknown]
  - Dehydration [Unknown]
  - Abdominal pain [Unknown]
  - Nausea [Unknown]
  - Sepsis [Unknown]
  - Cytomegalovirus infection [Unknown]
  - Gastrointestinal disorder [Unknown]
  - Colitis [Unknown]
  - Device issue [Unknown]

NARRATIVE: CASE EVENT DATE: 20220101
